FAERS Safety Report 5658433-1 (Version None)
Quarter: 2008Q1

REPORT INFORMATION
  Report Type: 
  Country: None (occurrence: None)
  Receive Date: 20080310
  Receipt Date: 20070226
  Transmission Date: 20080703
  Serious: No
  Sender: FDA-Public Use
  Company Number: US-BAYER-200710620BCC

PATIENT
  Age: 48 Year
  Sex: Male
  Weight: 102 kg

DRUGS (4)
  1. ALEVE [Suspect]
     Indication: NECK PAIN
     Dosage: TOTAL DAILY DOSE: 440 MG  UNIT DOSE: 220 MG
     Route: 048
     Dates: start: 20070201
  2. MARGARITAS [Suspect]
     Dates: start: 20070201
  3. CAFFEINE CITRATE [Suspect]
  4. PROPECIA [Concomitant]

REACTIONS (1)
  - DYSPEPSIA [None]
